FAERS Safety Report 18695452 (Version 1)
Quarter: 2021Q1

REPORT INFORMATION
  Report Type: Spontaneous
  Country: US (occurrence: US)
  Receive Date: 20210103
  Receipt Date: 20210103
  Transmission Date: 20210419
  Serious: Yes (Disabling, Other)
  Sender: FDA-Public Use
  Company Number: None

PATIENT
  Age: 58 Year
  Sex: Male
  Weight: 91.35 kg

DRUGS (1)
  1. CIPROFLOXACIN. [Suspect]
     Active Substance: CIPROFLOXACIN
     Indication: URINARY TRACT INFECTION
     Dosage: ?          QUANTITY:2 TABLET(S);?
     Route: 048
     Dates: start: 20190806, end: 20190814

REACTIONS (5)
  - Neuropathy peripheral [None]
  - Headache [None]
  - Tendon pain [None]
  - Muscle twitching [None]
  - Feeling abnormal [None]

NARRATIVE: CASE EVENT DATE: 20190813
